FAERS Safety Report 6324348-9 (Version None)
Quarter: 2009Q3

REPORT INFORMATION
  Report Type: 
  Country: None (occurrence: None)
  Receive Date: 20090820
  Receipt Date: 20090805
  Transmission Date: 20100115
  Serious: Yes (Hospitalization)
  Sender: FDA-Public Use
  Company Number: AUR-APL-2009-00359

PATIENT
  Sex: Female
  Weight: 53.6 kg

DRUGS (10)
  1. GABAPENTIN [Suspect]
     Indication: NEURALGIA
     Dosage: 300 MG, TID, ORAL
     Route: 048
     Dates: start: 20090714, end: 20090717
  2. ALENDRONIC ACID [Concomitant]
  3. CLOPIDOGREL [Concomitant]
  4. FUROSEMIDE [Concomitant]
  5. MIRTAZAPINE [Concomitant]
  6. OMEPRAZOLE [Concomitant]
  7. PARACETAMOL [Concomitant]
  8. SIMVASTATIN [Concomitant]
  9. TRAMADOL HCL [Concomitant]
  10. ZOPICLONE [Concomitant]

REACTIONS (6)
  - ALANINE AMINOTRANSFERASE INCREASED [None]
  - CONFUSIONAL STATE [None]
  - DEHYDRATION [None]
  - MALAISE [None]
  - MYOCLONUS [None]
  - THROMBOSIS [None]
